FAERS Safety Report 10651465 (Version 5)
Quarter: 2016Q1

REPORT INFORMATION
  Report Type: Report from Study
  Country: FR (occurrence: FR)
  Receive Date: 20141215
  Receipt Date: 20160113
  Transmission Date: 20160525
  Serious: Yes (Hospitalization, Other)
  Sender: FDA-Public Use
  Company Number: FR-JNJFOC-20141205390

PATIENT
  Age: 82 Year
  Sex: Female
  Weight: 56 kg

DRUGS (9)
  1. XARELTO [Suspect]
     Active Substance: RIVAROXABAN
     Indication: CEREBROVASCULAR ACCIDENT PROPHYLAXIS
     Route: 048
     Dates: start: 20140909, end: 20140928
  2. FUROSEMIDE. [Concomitant]
     Active Substance: FUROSEMIDE
     Indication: CARDIAC FAILURE
     Route: 048
     Dates: start: 20150113
  3. BISOPROLOL [Concomitant]
     Active Substance: BISOPROLOL
     Indication: CARDIAC FAILURE
     Route: 065
     Dates: start: 20150113
  4. RAMIPRIL. [Concomitant]
     Active Substance: RAMIPRIL
     Indication: CARDIAC FAILURE
     Route: 048
     Dates: start: 20150113
  5. KARDEGIC [Concomitant]
     Active Substance: ASPIRIN LYSINE
     Indication: ANGIOPATHY
     Route: 048
     Dates: start: 20150113
  6. AMIODARONE [Concomitant]
     Active Substance: AMIODARONE
     Indication: ATRIAL FIBRILLATION
     Route: 048
     Dates: start: 20140906
  7. XARELTO [Suspect]
     Active Substance: RIVAROXABAN
     Indication: ATRIAL FIBRILLATION
     Route: 048
     Dates: start: 20140909, end: 20140928
  8. FLUINDIONE [Concomitant]
     Active Substance: FLUINDIONE
     Indication: ATRIAL FIBRILLATION
     Route: 048
     Dates: start: 20150129
  9. KALEORID [Concomitant]
     Active Substance: POTASSIUM CHLORIDE
     Indication: HYPOKALAEMIA
     Route: 048

REACTIONS (17)
  - Asthenia [Recovered/Resolved]
  - Cardiac failure congestive [Recovered/Resolved]
  - Asthenia [Recovered/Resolved]
  - General physical health deterioration [Recovered/Resolved]
  - Pyrexia [Recovered/Resolved]
  - Lung disorder [Recovered/Resolved]
  - Cardiac failure congestive [Not Recovered/Not Resolved]
  - Cardiac failure [Recovering/Resolving]
  - Acute kidney injury [Unknown]
  - Decreased appetite [Recovered/Resolved]
  - Diastolic dysfunction [Recovering/Resolving]
  - General physical health deterioration [Recovered/Resolved]
  - Decreased appetite [Unknown]
  - Depression [Recovered/Resolved]
  - Hypotension [Unknown]
  - Electrocardiogram repolarisation abnormality [Recovering/Resolving]
  - Electrocardiogram repolarisation abnormality [Recovering/Resolving]

NARRATIVE: CASE EVENT DATE: 20141128
